FAERS Safety Report 25418208 (Version 1)
Quarter: 2025Q2

REPORT INFORMATION
  Report Type: Spontaneous
  Country: US (occurrence: None)
  Receive Date: 20250609
  Receipt Date: 20250609
  Transmission Date: 20250717
  Serious: Yes (Life-Threatening)
  Sender: FDA-CTU
  Company Number: None

PATIENT
  Age: 81 Year
  Sex: Female
  Weight: 73.8 kg

DRUGS (7)
  1. QULIPTA [Suspect]
     Active Substance: ATOGEPANT
     Indication: Migraine
     Dates: start: 20250305, end: 20250325
  2. AMLODIPINE [Concomitant]
     Active Substance: AMLODIPINE BESYLATE
  3. PROSCAR [Concomitant]
     Active Substance: FINASTERIDE
  4. ASPIRIN [Concomitant]
     Active Substance: ASPIRIN
  5. METOPROLOL [Concomitant]
     Active Substance: METOPROLOL
  6. ELAVIL [Concomitant]
     Active Substance: AMITRIPTYLINE HYDROCHLORIDE
  7. TOPAMAX [Concomitant]
     Active Substance: TOPIRAMATE

REACTIONS (9)
  - Cerebrovascular accident [None]
  - Abdominal pain upper [None]
  - Diarrhoea [None]
  - Aortic valve sclerosis [None]
  - Aortic valve incompetence [None]
  - Mitral valve incompetence [None]
  - Tricuspid valve incompetence [None]
  - Prosthetic cardiac valve regurgitation [None]
  - Supraventricular tachycardia [None]

NARRATIVE: CASE EVENT DATE: 20250325
